FAERS Safety Report 20967276 (Version 1)
Quarter: 2022Q2

REPORT INFORMATION
  Report Type: Spontaneous
  Country: IR (occurrence: IR)
  Receive Date: 20220616
  Receipt Date: 20220616
  Transmission Date: 20220720
  Serious: Yes (Death, Other)
  Sender: FDA-Public Use
  Company Number: IR-SLATE RUN PHARMACEUTICALS-22IR001139

PATIENT

DRUGS (4)
  1. AZITHROMYCIN [Suspect]
     Active Substance: AZITHROMYCIN
     Indication: Product used for unknown indication
     Dosage: UNK
  2. CHLOROQUINE [Concomitant]
     Active Substance: CHLOROQUINE
     Indication: Product used for unknown indication
  3. AMIKACIN [Concomitant]
     Active Substance: AMIKACIN
     Indication: Product used for unknown indication
  4. AMPICILLIN SODIUM\SULBACTAM SODIUM [Concomitant]
     Active Substance: AMPICILLIN SODIUM\SULBACTAM SODIUM
     Indication: Product used for unknown indication

REACTIONS (4)
  - Disseminated intravascular coagulation [Not Recovered/Not Resolved]
  - Bradycardia [Not Recovered/Not Resolved]
  - Cardiac arrest [Fatal]
  - Arrhythmia [Not Recovered/Not Resolved]
